FAERS Safety Report 7279953-2 (Version None)
Quarter: 2011Q1

REPORT INFORMATION
  Report Type: 
  Country: None (occurrence: None)
  Receive Date: 20110125
  Receipt Date: 20110110
  Transmission Date: 20110831
  Serious: Yes (Life-Threatening, Hospitalization)
  Sender: FDA-Public Use
  Company Number: 20110025

PATIENT
  Age: 94 Year
  Sex: Male

DRUGS (5)
  1. AMINOCAPROIC ACID [Suspect]
     Indication: FACTOR VIII DEFICIENCY
     Dosage: 750MG/HR X 8 HRS INTRAVENOUS
     Route: 042
  2. PREDNISONE TAB [Concomitant]
  3. TRANSFUSION [Concomitant]
  4. RECOMBINANT HUMAN FACTOR VIII [Concomitant]
  5. THROMBIN CREAM [Concomitant]

REACTIONS (2)
  - MELAENA [None]
  - ATRIOVENTRICULAR BLOCK COMPLETE [None]
